FAERS Safety Report 11545191 (Version 1)
Quarter: 2015Q3

REPORT INFORMATION
  Report Type: Spontaneous
  Country: US (occurrence: US)
  Receive Date: 20150924
  Receipt Date: 20150924
  Transmission Date: 20151125
  Serious: Yes (Other)
  Sender: FDA-Public Use
  Company Number: US-SA-2015SA142071

PATIENT
  Age: 52 Year
  Sex: Female

DRUGS (3)
  1. ALLEGRA ALLERGY [Suspect]
     Active Substance: FEXOFENADINE HYDROCHLORIDE
     Indication: MULTIPLE ALLERGIES
     Route: 048
     Dates: start: 2009
  2. ALLEGRA ALLERGY [Suspect]
     Active Substance: FEXOFENADINE HYDROCHLORIDE
     Indication: MULTIPLE ALLERGIES
     Route: 048
  3. ALLEGRA ALLERGY [Suspect]
     Active Substance: FEXOFENADINE HYDROCHLORIDE
     Indication: MULTIPLE ALLERGIES
     Dosage: TAKES 1 SOMETIMES 2 TABLETS
     Route: 048

REACTIONS (12)
  - Lower limb fracture [Unknown]
  - Gait disturbance [Recovering/Resolving]
  - Spinal cord injury cervical [Unknown]
  - Blood potassium [Unknown]
  - Blindness [Unknown]
  - Gallbladder disorder [Unknown]
  - Craniocerebral injury [Unknown]
  - Renal impairment [Unknown]
  - Haematoma [Unknown]
  - Seizure [Unknown]
  - Metal poisoning [Unknown]
  - Road traffic accident [Unknown]
